FAERS Safety Report 5338918-8 (Version None)
Quarter: 2007Q2

REPORT INFORMATION
  Report Type: 
  Country: None (occurrence: None)
  Receive Date: 20070404
  Receipt Date: 20060925
  Transmission Date: 20071010
  Serious: Yes (Other)
  Sender: FDA-Public Use
  Company Number: HQWYE359229SEP06

PATIENT
  Age: 28 Year
  Sex: Female
  Weight: 52.21 kg

DRUGS (8)
  1. ALAVERT [Suspect]
     Indication: EYE PRURITUS
     Dosage: ORAL
     Route: 048
     Dates: end: 20060801
  2. ALAVERT [Suspect]
     Indication: LACRIMATION INCREASED
     Dosage: ORAL
     Route: 048
     Dates: end: 20060801
  3. ALAVERT [Suspect]
     Indication: RHINORRHOEA
     Dosage: ORAL
     Route: 048
     Dates: end: 20060801
  4. ALAVERT [Suspect]
     Indication: SNEEZING
     Dosage: ORAL
     Route: 048
     Dates: end: 20060801
  5. ALAVERT [Suspect]
     Indication: EYE PRURITUS
     Dosage: ORAL
     Route: 048
     Dates: start: 20060801
  6. ALAVERT [Suspect]
     Indication: LACRIMATION INCREASED
     Dosage: ORAL
     Route: 048
     Dates: start: 20060801
  7. ALAVERT [Suspect]
     Indication: RHINORRHOEA
     Dosage: ORAL
     Route: 048
     Dates: start: 20060801
  8. ALAVERT [Suspect]
     Indication: SNEEZING
     Dosage: ORAL
     Route: 048
     Dates: start: 20060801

REACTIONS (2)
  - ANXIETY [None]
  - FEELING JITTERY [None]
